FAERS Safety Report 25192583 (Version 1)
Quarter: 2025Q2

REPORT INFORMATION
  Report Type: Spontaneous
  Country: US (occurrence: None)
  Receive Date: 20250414
  Receipt Date: 20250414
  Transmission Date: 20250717
  Serious: Yes (Hospitalization)
  Sender: FDA-CTU
  Company Number: None

PATIENT
  Age: 77 Year
  Sex: Female

DRUGS (11)
  1. LENALIDOMIDE [Suspect]
     Active Substance: LENALIDOMIDE
     Indication: Plasma cell myeloma in remission
     Dosage: FREQUENCY : DAILY;?
     Route: 048
     Dates: start: 20230901
  2. AMLODIPINE TAB 5MG [Concomitant]
  3. CALCIUM GARB POW HEAVY [Concomitant]
  4. CHOLESTYRAMI POW RESIN [Concomitant]
  5. CLARITIN TAB 10MG [Concomitant]
  6. DIPHENHYDRAM CAP 25MG [Concomitant]
  7. FERROUS SULF TAB 325MG [Concomitant]
  8. FUROSEMIDE [Concomitant]
     Active Substance: FUROSEMIDE
  9. LENALIDOMIDE CAP 2.5MG [Concomitant]
  10. LINZESS CAP 72MCG [Concomitant]
  11. OMEPRAZOLE [Concomitant]
     Active Substance: OMEPRAZOLE

REACTIONS (2)
  - Therapy interrupted [None]
  - Hip fracture [None]

NARRATIVE: CASE EVENT DATE: 20240401
